FAERS Safety Report 12850385 (Version 3)
Quarter: 2016Q4

REPORT INFORMATION
  Report Type: Spontaneous
  Country: US (occurrence: US)
  Receive Date: 20161014
  Receipt Date: 20161209
  Transmission Date: 20170207
  Serious: Yes (Hospitalization)
  Sender: FDA-Public Use
  Company Number: US-SAOL THERAPEUTICS-2016SAO00854

PATIENT
  Sex: Female

DRUGS (8)
  1. SUFENTA [Suspect]
     Active Substance: SUFENTANIL CITRATE
     Dosage: 2123 ?G, \DAY
  2. SUFENTA [Suspect]
     Active Substance: SUFENTANIL CITRATE
     Dosage: 1699.1 ?G, \DAY
     Dates: start: 20161116
  3. COMPOUNDED BACLOFEN [Suspect]
     Active Substance: BACLOFEN
     Indication: PAIN
     Dosage: 141.59 ?G, \DAY
  4. CLONIDINE. [Suspect]
     Active Substance: CLONIDINE
     Dosage: 377.58 ?G, UNK
  5. COMPOUNDED BACLOFEN [Suspect]
     Active Substance: BACLOFEN
     Dosage: 113.27 ?G, \DAY
     Dates: start: 20161116
  6. MORPHINE [Suspect]
     Active Substance: MORPHINE
     Dosage: .8495 MG, \DAY
  7. MORPHINE [Suspect]
     Active Substance: MORPHINE
     Dosage: 0.679 MG, \DAY
     Dates: start: 20161116
  8. CLONIDINE. [Suspect]
     Active Substance: CLONIDINE
     Dosage: 302.06 ?G, \DAY
     Dates: start: 20161116

REACTIONS (8)
  - Device malfunction [Unknown]
  - Medical device discomfort [Unknown]
  - Off label use [Unknown]
  - Chest pain [Unknown]
  - Abdominal pain [Unknown]
  - Device infusion issue [Unknown]
  - Pain [Unknown]
  - Burning sensation [Unknown]

NARRATIVE: CASE EVENT DATE: 2016
